FAERS Safety Report 6228602-0 (Version None)
Quarter: 2009Q2

REPORT INFORMATION
  Report Type: 
  Country: None (occurrence: None)
  Receive Date: 20090612
  Receipt Date: 20090601
  Transmission Date: 20091009
  Serious: Yes (Hospitalization)
  Sender: FDA-Public Use
  Company Number: AT-ABBOTT-08P-009-0473756-00

PATIENT
  Sex: Female
  Weight: 86 kg

DRUGS (3)
  1. HUMIRA (LEAD-IN) [Suspect]
     Indication: CROHN'S DISEASE
     Route: 058
     Dates: start: 20080414, end: 20080414
  2. HUMIRA (LEAD-IN) [Suspect]
     Route: 058
  3. HUMIRA (LEAD-IN) [Suspect]
     Route: 058

REACTIONS (2)
  - HEPATIC PAIN [None]
  - LIVER DISORDER [None]
